FAERS Safety Report 18809145 (Version 1)
Quarter: 2021Q1

REPORT INFORMATION
  Report Type: Spontaneous
  Country: DE (occurrence: DE)
  Receive Date: 20210129
  Receipt Date: 20210129
  Transmission Date: 20210419
  Serious: Yes (Other)
  Sender: FDA-Public Use
  Company Number: NVSC2021DE014353

PATIENT
  Sex: Female
  Weight: 100 kg

DRUGS (24)
  1. PREGABALIN. [Concomitant]
     Active Substance: PREGABALIN
     Indication: PRODUCT USED FOR UNKNOWN INDICATION
     Dosage: UNK
     Route: 065
  2. RANITIDIN 300 ? 1 A PHARMA [Suspect]
     Active Substance: RANITIDINE HYDROCHLORIDE
     Indication: CHRONIC GASTRITIS
     Dosage: 300 MG, UNKNOWN
     Route: 065
     Dates: start: 201710, end: 201802
  3. RANITIDIN 300 ? 1 A PHARMA [Suspect]
     Active Substance: RANITIDINE HYDROCHLORIDE
     Indication: HIATUS HERNIA
     Dosage: 300 MG, UNKNOWN
     Route: 065
     Dates: start: 201510, end: 201703
  4. MIRTAZAPINE. [Suspect]
     Active Substance: MIRTAZAPINE
     Indication: PRODUCT USED FOR UNKNOWN INDICATION
     Dosage: 1 DF, QD
     Route: 065
  5. DOXEPIN [Suspect]
     Active Substance: DOXEPIN
     Indication: PRODUCT USED FOR UNKNOWN INDICATION
     Dosage: UNK
     Route: 065
  6. TILIDIN N [Suspect]
     Active Substance: NALOXONE HYDROCHLORIDE\TILIDINE HYDROCHLORIDE
     Indication: ARTHRALGIA
     Dosage: 4 MG, BID
     Route: 065
  7. KATADOLON [Suspect]
     Active Substance: FLUPIRTINE
     Indication: PRODUCT USED FOR UNKNOWN INDICATION
     Dosage: UNK UNK, QD
     Route: 065
  8. METAMIZOLE [Concomitant]
     Active Substance: METAMIZOLE
     Indication: PRODUCT USED FOR UNKNOWN INDICATION
     Dosage: 1 DF, QD
     Route: 065
  9. DICLOFENAC [Concomitant]
     Active Substance: DICLOFENAC
     Indication: PRODUCT USED FOR UNKNOWN INDICATION
     Dosage: 1 DF, BID
     Route: 065
  10. RANITIDIN 300 ? 1 A PHARMA [Suspect]
     Active Substance: RANITIDINE HYDROCHLORIDE
     Indication: GASTROOESOPHAGEAL REFLUX DISEASE
     Dosage: 300 MG, UNKNOWN
     Route: 065
     Dates: start: 1999
  11. PANTOPRAZOLE [Concomitant]
     Active Substance: PANTOPRAZOLE
     Indication: PRODUCT USED FOR UNKNOWN INDICATION
     Dosage: 1 DF, QD
     Route: 065
  12. ESOMEPRAZOLE. [Concomitant]
     Active Substance: ESOMEPRAZOLE MAGNESIUM
     Indication: PRODUCT USED FOR UNKNOWN INDICATION
     Dosage: 1 DF, QD
     Route: 065
  13. LUVASED [Concomitant]
     Active Substance: HERBALS\HOPS\VALERIAN
     Indication: PRODUCT USED FOR UNKNOWN INDICATION
     Dosage: UNK UNK, QD
     Route: 065
  14. DULOXETINE. [Suspect]
     Active Substance: DULOXETINE
     Indication: FIBROMYALGIA
  15. MAPROTILINE [Concomitant]
     Active Substance: MAPROTILINE
     Indication: PAIN
     Dosage: UNK
     Route: 065
  16. LOTRICOMB [Concomitant]
     Active Substance: BETAMETHASONE DIPROPIONATE\CLOTRIMAZOLE
     Indication: PRODUCT USED FOR UNKNOWN INDICATION
     Dosage: UNK
     Route: 065
  17. DUSPATAL [Concomitant]
     Active Substance: MEBEVERINE
     Indication: PRODUCT USED FOR UNKNOWN INDICATION
     Dosage: 1 DF, TID
     Route: 065
  18. RAMIPRIL. [Concomitant]
     Active Substance: RAMIPRIL
     Indication: PRODUCT USED FOR UNKNOWN INDICATION
     Dosage: 1 DF, QD
     Route: 065
  19. RANITIDIN 300 ? 1 A PHARMA [Suspect]
     Active Substance: RANITIDINE HYDROCHLORIDE
     Dosage: 300 MG, UNKNOWN
     Route: 065
     Dates: start: 201906, end: 202001
  20. DULOXETINE. [Suspect]
     Active Substance: DULOXETINE
     Indication: PAIN
     Dosage: 60 MG, QD
     Route: 065
     Dates: end: 201010
  21. MYDOCALM [Concomitant]
     Indication: PRODUCT USED FOR UNKNOWN INDICATION
     Dosage: 1 DF, QD
     Route: 065
  22. ANAFRANIL [Concomitant]
     Active Substance: CLOMIPRAMINE HYDROCHLORIDE
     Indication: PAIN
     Dosage: UNK
     Route: 065
  23. DIAZEPAM. [Concomitant]
     Active Substance: DIAZEPAM
     Indication: PRODUCT USED FOR UNKNOWN INDICATION
     Dosage: UNK
     Route: 065
  24. REMIFEMIN PLUS [Concomitant]
     Active Substance: BLACK COHOSH\HERBALS\HYPERICUM PERFORATUM
     Indication: PRODUCT USED FOR UNKNOWN INDICATION
     Dosage: 1 DF, BID
     Route: 065

REACTIONS (12)
  - Syncope [Unknown]
  - Tinea pedis [Unknown]
  - Pain [Unknown]
  - Fatigue [Unknown]
  - Pyrexia [Unknown]
  - Cough [Unknown]
  - Sinusitis [Unknown]
  - Productive cough [Unknown]
  - Arthropod bite [Unknown]
  - Nasopharyngitis [Unknown]
  - Lyme disease [Unknown]
  - Bronchitis [Unknown]

NARRATIVE: CASE EVENT DATE: 2001
